FAERS Safety Report 7525865-6 (Version None)
Quarter: 2011Q2

REPORT INFORMATION
  Report Type: 
  Country: None (occurrence: None)
  Receive Date: 20110606
  Receipt Date: 20110527
  Transmission Date: 20111010
  Serious: Yes (Death, Hospitalization)
  Sender: FDA-Public Use
  Company Number: A0929535A

PATIENT
  Age: 82 Year
  Sex: Male

DRUGS (8)
  1. FLOVENT [Suspect]
     Indication: LUNG DISORDER
     Dosage: 2PUFF TWICE PER DAY
     Route: 055
     Dates: start: 20110401, end: 20110525
  2. CARVEDILOL [Concomitant]
  3. NIASPAN [Concomitant]
  4. ISOBIDE [Concomitant]
  5. RAMIPRIL [Concomitant]
  6. TRICOR [Concomitant]
  7. UNSPECIFIED MEDICATION [Concomitant]
  8. LIPITOR [Concomitant]

REACTIONS (1)
  - CARDIAC FAILURE CONGESTIVE [None]
